FAERS Safety Report 9924368 (Version 2)
Quarter: 2014Q1

REPORT INFORMATION
  Report Type: Spontaneous
  Country: GB (occurrence: GB)
  Receive Date: 20140226
  Receipt Date: 20140306
  Transmission Date: 20141002
  Serious: Yes (Other)
  Sender: FDA-Public Use
  Company Number: GB-ROCHE-1352052

PATIENT
  Sex: Female
  Weight: 48 kg

DRUGS (4)
  1. CELLCEPT [Suspect]
     Indication: SYSTEMIC LUPUS ERYTHEMATOSUS
     Dosage: FORM STRENGTH (1 G PER 5 ML)
     Route: 048
  2. MORPHINE SULFATE [Concomitant]
     Indication: PAIN
     Route: 048
  3. PREDNISONE [Concomitant]
     Indication: SYSTEMIC LUPUS ERYTHEMATOSUS
     Route: 048
  4. PARACETAMOL [Concomitant]
     Indication: PAIN
     Route: 048

REACTIONS (3)
  - Oesophageal stenosis [Unknown]
  - Diverticulum [Unknown]
  - Vomiting [Unknown]
